FAERS Safety Report 19418529 (Version 1)
Quarter: 2021Q2

REPORT INFORMATION
  Report Type: Report from Study
  Country: CA (occurrence: CA)
  Receive Date: 20210615
  Receipt Date: 20210615
  Transmission Date: 20210717
  Serious: Yes (Other)
  Sender: FDA-Public Use
  Company Number: CA-ELI_LILLY_AND_COMPANY-CA202106002954

PATIENT
  Age: 87 Year
  Sex: Male
  Weight: 89 kg

DRUGS (3)
  1. ENCORAFENIB [Suspect]
     Active Substance: ENCORAFENIB
     Indication: COLON CANCER METASTATIC
     Dosage: 300 MG, DAILY
     Route: 048
  2. FLOMAX [Concomitant]
     Active Substance: TAMSULOSIN HYDROCHLORIDE
     Indication: BENIGN PROSTATIC HYPERPLASIA
     Dosage: 0.4 MG, DAILY
     Route: 048
  3. ERBITUX [Suspect]
     Active Substance: CETUXIMAB
     Indication: COLON CANCER METASTATIC
     Dosage: 828 MG, UNKNOWN
     Route: 042

REACTIONS (12)
  - Hypophagia [Unknown]
  - Dehydration [Unknown]
  - Decreased appetite [Unknown]
  - Rash [Unknown]
  - Diarrhoea [Unknown]
  - Paronychia [Unknown]
  - Rash pustular [Unknown]
  - Pustule [Unknown]
  - Hypotension [Unknown]
  - Asthenia [Unknown]
  - Rash maculo-papular [Unknown]
  - Constipation [Unknown]
